FAERS Safety Report 10442509 (Version 1)
Quarter: 2014Q3

REPORT INFORMATION
  Report Type: Report from Study
  Country: JP (occurrence: JP)
  Receive Date: 20140909
  Receipt Date: 20140909
  Transmission Date: 20150326
  Serious: No
  Sender: FDA-Public Use
  Company Number: PHHY2012JP136037

PATIENT
  Age: 60 Year
  Sex: Female

DRUGS (2)
  1. AMN107 [Suspect]
     Active Substance: NILOTINIB
     Indication: CHRONIC MYELOID LEUKAEMIA
     Dosage: UNK UKN, UNK
     Dates: start: 20120326
  2. AMN107 [Suspect]
     Active Substance: NILOTINIB
     Dosage: 300 MG, UNK
     Dates: start: 20120326

REACTIONS (2)
  - Electrocardiogram QT prolonged [Unknown]
  - Cardiomegaly [Unknown]
